FAERS Safety Report 17567774 (Version 2)
Quarter: 2020Q2

REPORT INFORMATION
  Report Type: Report from Study
  Country: US (occurrence: US)
  Receive Date: 20200320
  Receipt Date: 20200410
  Transmission Date: 20200713
  Serious: Yes (Death)
  Sender: FDA-Public Use
  Company Number: US-ACTELION-A-US2020-203067

PATIENT
  Age: 68 Year
  Sex: Female

DRUGS (15)
  1. CARTIA XT [Concomitant]
     Active Substance: DILTIAZEM HYDROCHLORIDE
  2. DILTIAZEM. [Concomitant]
     Active Substance: DILTIAZEM
  3. UPTRAVI [Concomitant]
     Active Substance: SELEXIPAG
  4. ACETAMINOPHEN. [Concomitant]
     Active Substance: ACETAMINOPHEN
  5. OXYGEN. [Concomitant]
     Active Substance: OXYGEN
     Dosage: 15 - 25 LPM
  6. MYCOPHENOLATE [Concomitant]
     Active Substance: MYCOPHENOLIC ACID
  7. OPSUMIT [Suspect]
     Active Substance: MACITENTAN
     Indication: PULMONARY HYPERTENSION
     Dosage: 10 MG, QD
     Route: 048
     Dates: start: 20170628, end: 20191225
  8. ACYCLOVIR. [Concomitant]
     Active Substance: ACYCLOVIR
  9. GABAPENTIN. [Concomitant]
     Active Substance: GABAPENTIN
  10. XARELTO [Concomitant]
     Active Substance: RIVAROXABAN
  11. HYDROCODONE [Concomitant]
     Active Substance: HYDROCODONE
  12. PREDNISONE. [Concomitant]
     Active Substance: PREDNISONE
  13. SILDENAFIL. [Concomitant]
     Active Substance: SILDENAFIL
     Dosage: 20 MG
  14. ALENDRONATE SODIUM. [Concomitant]
     Active Substance: ALENDRONATE SODIUM
  15. FUROSEMIDE. [Concomitant]
     Active Substance: FUROSEMIDE

REACTIONS (1)
  - Terminal state [Fatal]

NARRATIVE: CASE EVENT DATE: 20191225
